FAERS Safety Report 8238177-2 (Version None)
Quarter: 2012Q1

REPORT INFORMATION
  Report Type: 
  Country: None (occurrence: None)
  Receive Date: 20120327
  Receipt Date: 20120312
  Transmission Date: 20120608
  Serious: Yes (Death, Hospitalization)
  Sender: FDA-Public Use
  Company Number: NL-ROCHE-1040120

PATIENT
  Sex: Female

DRUGS (8)
  1. AVASTIN [Suspect]
     Indication: BRAIN NEOPLASM MALIGNANT
     Dosage: LAST DOSE ADMINISTERED PRIOR TO SAE WAS ON 13/FEB/2012
     Route: 042
     Dates: start: 20111025
  2. ACETAMINOPHEN [Concomitant]
     Dosage: LAST DOSE ADMINISTERED PRIOR TO SAE WAS ON 13/FEB/2012
     Route: 048
     Dates: start: 20120116
  3. OMEPRAZOLE [Concomitant]
     Dosage: LAST DOSE ADMINISTERED PRIOR TO SAE WAS ON 13/FEB/2012
     Route: 048
     Dates: start: 20120116
  4. KEPPRA [Concomitant]
     Dosage: LAST DOSE ADMINISTERED PRIOR TO SAE WAS ON 13/FEB/2012
     Route: 048
     Dates: start: 20100707
  5. LEVOTHYROXINE SODIUM [Concomitant]
     Dosage: LAST DOSE ADMINISTERED PRIOR TO SAE WAS ON 13/FEB/2012
     Route: 048
     Dates: start: 20100630
  6. DEXAMETHASONE SODIUM PHOSPHATE [Concomitant]
     Dosage: LAST DOSE ADMINISTERED PRIOR TO SAE WAS ON 13/FEB/2012
     Route: 048
     Dates: start: 20120116, end: 20120224
  7. ACETAMINOPHEN [Concomitant]
     Route: 048
     Dates: start: 20120220, end: 20120224
  8. ESOMEPRAZOLE [Concomitant]
     Route: 048
     Dates: start: 20120116

REACTIONS (11)
  - PNEUMONIA ASPIRATION [None]
  - INFECTION [None]
  - COMA [None]
  - DYSPHAGIA [None]
  - STAPHYLOCOCCAL INFECTION [None]
  - NEOPLASM PROGRESSION [None]
  - WEIGHT DECREASED [None]
  - BRAIN HERNIATION [None]
  - HYPOPHAGIA [None]
  - BRAIN STEM SYNDROME [None]
  - GLIOBLASTOMA MULTIFORME [None]
